FAERS Safety Report 11574450 (Version 2)
Quarter: 2015Q4

REPORT INFORMATION
  Report Type: Spontaneous
  Country: IT (occurrence: IT)
  Receive Date: 20150930
  Receipt Date: 20151105
  Transmission Date: 20160304
  Serious: Yes (Death, Other)
  Sender: FDA-Public Use
  Company Number: IT-AUROBINDO-AUR-APL-2015-08678

PATIENT

DRUGS (4)
  1. IMMUNE GLOBULIN [Suspect]
     Active Substance: HUMAN IMMUNOGLOBULIN G
     Indication: PRODUCT USED FOR UNKNOWN INDICATION
     Dosage: 0.75 G, UNK
     Route: 042
  2. AMOXICILLIN. [Suspect]
     Active Substance: AMOXICILLIN
     Indication: UPPER RESPIRATORY TRACT INFECTION
     Route: 065
  3. PREDNISONE. [Suspect]
     Active Substance: PREDNISONE
     Indication: PRODUCT USED FOR UNKNOWN INDICATION
     Dosage: 1 MG/KG, UNK
     Route: 065
  4. CLARITHROMYCIN. [Suspect]
     Active Substance: CLARITHROMYCIN
     Indication: PRODUCT USED FOR UNKNOWN INDICATION
     Route: 065

REACTIONS (17)
  - Gastrointestinal oedema [Unknown]
  - Gastrointestinal necrosis [Unknown]
  - Toxic epidermal necrolysis [Unknown]
  - Renal impairment [Unknown]
  - Pyrexia [Unknown]
  - Abdominal pain [Unknown]
  - Skin lesion [Unknown]
  - Rash erythematous [Unknown]
  - Intestinal infarction [Unknown]
  - Electrolyte imbalance [Unknown]
  - Tachycardia [Unknown]
  - General physical health deterioration [Unknown]
  - Oedema mucosal [Unknown]
  - Astringent therapy [Unknown]
  - Macule [Unknown]
  - Multi-organ failure [Fatal]
  - Faecal vomiting [Unknown]
